FAERS Safety Report 15412496 (Version 1)
Quarter: 2018Q3

REPORT INFORMATION
  Report Type: Spontaneous
  Country: US (occurrence: US)
  Receive Date: 20180921
  Receipt Date: 20180921
  Transmission Date: 20181010
  Serious: No
  Sender: FDA-Public Use
  Company Number: US-SA-2018SA259258

PATIENT
  Sex: Male

DRUGS (2)
  1. LANTUS [Suspect]
     Active Substance: INSULIN GLARGINE
     Dosage: UNK, UNK
  2. NOVOLOG [Suspect]
     Active Substance: INSULIN ASPART
     Dosage: UNK UNK, UNK

REACTIONS (2)
  - Condition aggravated [Unknown]
  - Intentional product use issue [Unknown]
